FAERS Safety Report 6667818-6 (Version None)
Quarter: 2010Q2

REPORT INFORMATION
  Report Type: 
  Country: None (occurrence: None)
  Receive Date: 20100405
  Receipt Date: 20100304
  Transmission Date: 20101027
  Serious: No
  Sender: FDA-Public Use
  Company Number: US-BAYER-201012854BCC

PATIENT
  Sex: Female
  Weight: 88 kg

DRUGS (4)
  1. ALEVE (CAPLET) [Suspect]
     Indication: HEADACHE
     Dosage: TOTAL DAILY DOSE: 220 MG  UNIT DOSE: 220 MG
     Route: 048
     Dates: start: 20090101
  2. ALEVE (CAPLET) [Suspect]
     Indication: PAIN
     Route: 048
  3. ALEVE (CAPLET) [Suspect]
     Dosage: TOTAL DAILY DOSE: 440 MG  UNIT DOSE: 220 MG
     Route: 048
     Dates: start: 20100303
  4. AVONEX [Concomitant]
     Route: 065

REACTIONS (2)
  - CHEST PAIN [None]
  - FEELING ABNORMAL [None]
